FAERS Safety Report 9436750 (Version 4)
Quarter: 2014Q1

REPORT INFORMATION
  Report Type: Report from Study
  Country: US (occurrence: US)
  Receive Date: 20130802
  Receipt Date: 20140313
  Transmission Date: 20141002
  Serious: Yes (Other)
  Sender: FDA-Public Use
  Company Number: US-SANOFI-AVENTIS-2013SA076820

PATIENT
  Age: 50 Year
  Sex: Female
  Weight: 104.32 kg

DRUGS (6)
  1. AUBAGIO [Suspect]
     Indication: MULTIPLE SCLEROSIS
     Dosage: TAKEN TO - LAST WEEK OF JUN-2013
     Route: 048
     Dates: start: 20130604
  2. AMBIEN [Concomitant]
     Indication: SLEEP DISORDER
  3. XANAX [Concomitant]
     Indication: ANXIETY
  4. HYDROCHLOROTHIAZIDE/LOSARTAN [Concomitant]
     Indication: BLOOD PRESSURE
     Dosage: 100/25 MG TABLET
     Route: 048
  5. FOCALIN [Concomitant]
     Indication: ASTHENIA
  6. PROMETHAZINE [Concomitant]
     Indication: NAUSEA
     Route: 065
     Dates: start: 20130512, end: 20130711

REACTIONS (19)
  - Retinal toxicity [Unknown]
  - Vision blurred [Unknown]
  - Visual impairment [Unknown]
  - Psoriasis [Unknown]
  - Dehydration [Unknown]
  - Chromaturia [Unknown]
  - Pain in extremity [Unknown]
  - Pain [Unknown]
  - Chest pain [Unknown]
  - Blood pressure increased [Unknown]
  - Diarrhoea [Unknown]
  - Abdominal distension [Unknown]
  - Abdominal pain upper [Unknown]
  - Fatigue [Unknown]
  - Dyspnoea [Unknown]
  - Nausea [Unknown]
  - Paraesthesia [Recovered/Resolved]
  - Respiratory disorder [Unknown]
  - Hepatic enzyme abnormal [Unknown]
